FAERS Safety Report 8989187 (Version 4)
Quarter: 2013Q4

REPORT INFORMATION
  Report Type: Report from Study
  Country: US (occurrence: US)
  Receive Date: 20121228
  Receipt Date: 20131021
  Transmission Date: 20140711
  Serious: Yes (Hospitalization, Other)
  Sender: FDA-Public Use
  Company Number: PHEH2012US025350

PATIENT
  Age: 65 Year
  Sex: Female

DRUGS (13)
  1. TASIGNA [Suspect]
     Indication: CHRONIC MYELOID LEUKAEMIA
     Dosage: 300 MG, BID
     Route: 048
     Dates: start: 20120706
  2. TASIGNA [Suspect]
     Route: 048
  3. TASIGNA [Suspect]
     Dosage: 300 MG, Q12H
     Route: 048
     Dates: start: 20130227, end: 20130416
  4. TASIGNA [Suspect]
     Route: 048
  5. TRAMADOL [Concomitant]
  6. SYMBICORT [Concomitant]
  7. CALCIUM [Concomitant]
  8. COD LIVER OIL [Concomitant]
  9. FISH OIL [Concomitant]
  10. CO-ENZYME Q10 [Concomitant]
  11. ONDANSETRON [Concomitant]
  12. CLONIDINE [Concomitant]
  13. TYLENOL [Concomitant]

REACTIONS (29)
  - Viral infection [Unknown]
  - Nausea [Unknown]
  - Vomiting [Unknown]
  - Dehydration [Unknown]
  - Cough [Unknown]
  - Pyrexia [Unknown]
  - Dyspepsia [Not Recovered/Not Resolved]
  - Abdominal distension [Not Recovered/Not Resolved]
  - Dysgeusia [Not Recovered/Not Resolved]
  - Bone pain [Not Recovered/Not Resolved]
  - Headache [Not Recovered/Not Resolved]
  - Ulcer [Unknown]
  - Asthma [Unknown]
  - Gastrointestinal haemorrhage [Unknown]
  - Skin burning sensation [Unknown]
  - Feeling abnormal [Unknown]
  - Reflux gastritis [Not Recovered/Not Resolved]
  - Choking [Not Recovered/Not Resolved]
  - Hypophagia [Unknown]
  - Diverticulitis [Unknown]
  - Pain [Unknown]
  - Gastrointestinal disorder [Unknown]
  - Chest pain [Unknown]
  - Pruritus [Unknown]
  - Muscle spasms [Unknown]
  - Palpitations [Not Recovered/Not Resolved]
  - Dry mouth [Not Recovered/Not Resolved]
  - Fatigue [Not Recovered/Not Resolved]
  - Dizziness [Not Recovered/Not Resolved]
